FAERS Safety Report 10693685 (Version 2)
Quarter: 2015Q1

REPORT INFORMATION
  Report Type: Spontaneous
  Country: US (occurrence: US)
  Receive Date: 20150106
  Receipt Date: 20150116
  Transmission Date: 20150721
  Serious: Yes (Disabling, Other)
  Sender: FDA-Public Use
  Company Number: US-BAYER-2014-191309

PATIENT
  Age: 24 Year
  Sex: Female

DRUGS (1)
  1. MIRENA [Suspect]
     Active Substance: LEVONORGESTREL
     Indication: DYSMENORRHOEA
     Dosage: 20 MCG/24HR, CONT
     Route: 015
     Dates: start: 20141229

REACTIONS (5)
  - Pregnancy with contraceptive device [None]
  - Medication error [None]
  - Product use issue [None]
  - Dysmenorrhoea [None]
  - Abortion spontaneous [None]

NARRATIVE: CASE EVENT DATE: 2014
